FAERS Safety Report 23016437 (Version 1)
Quarter: 2023Q4

REPORT INFORMATION
  Report Type: Spontaneous
  Country: CN (occurrence: CN)
  Receive Date: 20231002
  Receipt Date: 20231002
  Transmission Date: 20240110
  Serious: Yes (Hospitalization, Other)
  Sender: FDA-Public Use
  Company Number: None

PATIENT
  Age: 13 Year
  Sex: Male

DRUGS (16)
  1. CYCLOPHOSPHAMIDE [Suspect]
     Active Substance: CYCLOPHOSPHAMIDE
     Indication: Brain neoplasm malignant
     Dosage: 670 MG, ONE TIME IN ONE DAY DILUTED WITH 400 ML OF SODIUM CHLORIDE
     Route: 041
     Dates: start: 20230908, end: 20230909
  2. CYCLOPHOSPHAMIDE [Suspect]
     Active Substance: CYCLOPHOSPHAMIDE
     Indication: Malignant neoplasm of spinal cord
  3. CYCLOPHOSPHAMIDE [Suspect]
     Active Substance: CYCLOPHOSPHAMIDE
     Indication: Metastases to spinal cord
  4. CYCLOPHOSPHAMIDE [Suspect]
     Active Substance: CYCLOPHOSPHAMIDE
     Indication: Chemotherapy
  5. SODIUM CHLORIDE [Suspect]
     Active Substance: SODIUM CHLORIDE
     Indication: Medication dilution
     Dosage: 400 ML, ONE TIME IN ONE DAY USED TO DILUTE 670 MG OF CYCLOPHOSPHAMIDE
     Route: 041
     Dates: start: 20230908, end: 20230909
  6. SODIUM CHLORIDE [Suspect]
     Active Substance: SODIUM CHLORIDE
     Dosage: (0.9%) 500 ML, ONE TIME IN ONE DAY USED TO DILUTE WITH 67 MG OF CISPLATIN
     Route: 041
     Dates: start: 20230908, end: 20230908
  7. SODIUM CHLORIDE [Suspect]
     Active Substance: SODIUM CHLORIDE
     Dosage: (0.9%) ONE TIME IN ONE DAY, USED TO DILUTE WITH 2.7 MG OF VINDESINE SULFATE
     Route: 042
     Dates: start: 20230908, end: 20230908
  8. SODIUM CHLORIDE [Suspect]
     Active Substance: SODIUM CHLORIDE
     Dosage: (0.9%) ONE TIME IN ONE DAY, USED TO DILUTE WITH 2.7 MG OF VINDESINE SULFATE
     Route: 042
     Dates: start: 20230915, end: 20230915
  9. VINDESINE SULFATE [Suspect]
     Active Substance: VINDESINE SULFATE
     Indication: Brain neoplasm malignant
     Dosage: 2.7 MG, ONE TIME IN ONE DAY DILUTED WITH 0.9% SODIUM CHLORIDE
     Route: 042
     Dates: start: 20230908, end: 20230908
  10. VINDESINE SULFATE [Suspect]
     Active Substance: VINDESINE SULFATE
     Indication: Malignant neoplasm of spinal cord
     Dosage: 2.7 MG, ONE TIME IN ONE DAY DILUTED WITH 0.9% SODIUM CHLORIDE
     Route: 042
     Dates: start: 20230915, end: 20230915
  11. VINDESINE SULFATE [Suspect]
     Active Substance: VINDESINE SULFATE
     Indication: Metastases to spinal cord
  12. VINDESINE SULFATE [Suspect]
     Active Substance: VINDESINE SULFATE
     Indication: Chemotherapy
  13. CISPLATIN [Suspect]
     Active Substance: CISPLATIN
     Indication: Brain neoplasm malignant
     Dosage: 67 MG, ONE TIME IN ONE DAY DILUTED WITH 500 ML OF SODIUM CHLORIDE
     Route: 041
     Dates: start: 20230908, end: 20230908
  14. CISPLATIN [Suspect]
     Active Substance: CISPLATIN
     Indication: Malignant neoplasm of spinal cord
  15. CISPLATIN [Suspect]
     Active Substance: CISPLATIN
     Indication: Metastases to spinal cord
  16. CISPLATIN [Suspect]
     Active Substance: CISPLATIN
     Indication: Chemotherapy

REACTIONS (1)
  - Myelosuppression [Recovering/Resolving]

NARRATIVE: CASE EVENT DATE: 20230917
